FAERS Safety Report 5810351-1 (Version None)
Quarter: 2008Q3

REPORT INFORMATION
  Report Type: 
  Country: None (occurrence: None)
  Receive Date: 20080715
  Receipt Date: 20080513
  Transmission Date: 20090109
  Serious: No
  Sender: FDA-Public Use
  Company Number: A0728603A

PATIENT
  Age: 39 Year
  Sex: Female
  Weight: 92.1 kg

DRUGS (2)
  1. IMITREX [Suspect]
     Indication: MIGRAINE
     Dosage: 1TAB UNKNOWN
     Route: 048
  2. LEVONORGESTREL [Suspect]
     Indication: CONTRACEPTION
     Route: 048
     Dates: start: 20080325, end: 20080326

REACTIONS (4)
  - BREAST DISCHARGE [None]
  - BREAST ENLARGEMENT [None]
  - BREAST TENDERNESS [None]
  - GENITAL HAEMORRHAGE [None]
